FAERS Safety Report 6370701-7 (Version None)
Quarter: 2009Q3

REPORT INFORMATION
  Report Type: 
  Country: None (occurrence: None)
  Receive Date: 20090923
  Receipt Date: 20070523
  Transmission Date: 20100115
  Serious: Yes (Other)
  Sender: FDA-Public Use
  Company Number: US-ASTRAZENECA-2006UW25158

PATIENT
  Age: 47 Year
  Sex: Male
  Weight: 77.1 kg

DRUGS (22)
  1. SEROQUEL [Suspect]
     Indication: SCHIZOPHRENIA
     Route: 048
     Dates: start: 20010101
  2. SEROQUEL [Suspect]
     Indication: BIPOLAR DISORDER
     Route: 048
     Dates: start: 20010101
  3. SEROQUEL [Suspect]
     Indication: DEPRESSION
     Route: 048
     Dates: start: 20010101
  4. SEROQUEL [Suspect]
     Route: 048
     Dates: start: 20020101, end: 20060101
  5. SEROQUEL [Suspect]
     Route: 048
     Dates: start: 20020101, end: 20060101
  6. SEROQUEL [Suspect]
     Route: 048
     Dates: start: 20020101, end: 20060101
  7. SEROQUEL [Suspect]
     Dosage: 200-800 MG
     Route: 048
     Dates: start: 20010920
  8. SEROQUEL [Suspect]
     Dosage: 200-800 MG
     Route: 048
     Dates: start: 20010920
  9. SEROQUEL [Suspect]
     Dosage: 200-800 MG
     Route: 048
     Dates: start: 20010920
  10. LIPITOR [Concomitant]
     Indication: BLOOD CHOLESTEROL INCREASED
     Dates: start: 20030101
  11. LIPITOR [Concomitant]
     Indication: HYPERLIPIDAEMIA
     Dates: start: 20030101
  12. LIPITOR [Concomitant]
     Dosage: 30 MG DAILY
     Route: 048
     Dates: start: 20041222
  13. LIPITOR [Concomitant]
     Dosage: 30 MG DAILY
     Route: 048
     Dates: start: 20041222
  14. OLANZAPINE [Concomitant]
     Dosage: 2 TAB OF 10 MG EACH EVENING
     Route: 048
     Dates: start: 20011010
  15. MARIJUANA [Concomitant]
     Dates: start: 19900101, end: 19990101
  16. TRAZODONE [Concomitant]
     Route: 048
     Dates: start: 20011116
  17. BUSPIRONE HCL [Concomitant]
     Dosage: 5-30 MG
     Route: 048
     Dates: start: 20011116
  18. HYDROXYZINE [Concomitant]
     Route: 048
     Dates: start: 20020624
  19. PHENYTOIN [Concomitant]
     Dosage: 2 CAP OF 100 MG AT NIGHT
     Route: 048
     Dates: start: 20011116
  20. ENALAPRIL MALEATE [Concomitant]
     Route: 048
     Dates: start: 20041222
  21. SUDAFED 12 HOUR [Concomitant]
  22. KLONOPIN [Concomitant]
     Dates: start: 20011010

REACTIONS (5)
  - BLOOD CHOLESTEROL INCREASED [None]
  - DIABETES MELLITUS [None]
  - DYSLIPIDAEMIA [None]
  - HYPERLIPIDAEMIA [None]
  - TARDIVE DYSKINESIA [None]
